FAERS Safety Report 8713226 (Version 3)
Quarter: 2014Q2

REPORT INFORMATION
  Report Type: Report from Study
  Country: US (occurrence: US)
  Receive Date: 20120808
  Receipt Date: 20140513
  Transmission Date: 20141212
  Serious: Yes (Hospitalization)
  Sender: FDA-Public Use
  Company Number: US-ROCHE-1096572

PATIENT
  Age: 60 Year
  Sex: Female
  Weight: 48.53 kg

DRUGS (13)
  1. BEVACIZUMAB [Suspect]
     Indication: NON-SMALL CELL LUNG CANCER
     Route: 042
     Dates: start: 20120309, end: 20120329
  2. BEVACIZUMAB [Suspect]
     Route: 042
     Dates: start: 20120510
  3. PACLITAXEL [Suspect]
     Indication: NON-SMALL CELL LUNG CANCER
     Route: 042
     Dates: start: 20120309
  4. CARBOPLATIN [Suspect]
     Indication: NON-SMALL CELL LUNG CANCER
     Dosage: 6 AUC
     Route: 042
     Dates: start: 20120309, end: 20120329
  5. CARBOPLATIN [Suspect]
     Dosage: 6 AUC
     Route: 042
     Dates: start: 20120510
  6. FOLIC ACID [Concomitant]
     Route: 065
     Dates: start: 20120227
  7. VITAMIN B12 [Concomitant]
     Route: 065
     Dates: start: 20120227
  8. COZAAR [Concomitant]
     Indication: HYPERTENSION
     Route: 065
     Dates: start: 201102
  9. LEVEMIR [Concomitant]
     Indication: DIABETES MELLITUS
  10. ADVAIR [Concomitant]
     Indication: ASTHMA
  11. ALBUTEROL [Concomitant]
     Indication: ASTHMA
  12. COMPAZINE [Concomitant]
     Indication: NAUSEA
     Route: 065
     Dates: start: 20120310
  13. COMPAZINE [Concomitant]
     Indication: VOMITING

REACTIONS (1)
  - Autonomic nervous system imbalance [Recovered/Resolved]
